FAERS Safety Report 23652940 (Version 1)
Quarter: 2024Q1

REPORT INFORMATION
  Report Type: Other
  Country: US (occurrence: None)
  Receive Date: 20240320
  Receipt Date: 20240320
  Transmission Date: 20240410
  Serious: Yes (Other)
  Sender: FDA-Public Use
  Company Number: US-ROCHE-3525385

PATIENT
  Age: 73 Year
  Sex: Male

DRUGS (12)
  1. ACTEMRA [Suspect]
     Active Substance: TOCILIZUMAB
     Indication: Rheumatoid arthritis
     Dosage: LAST DOSE DATE WAS ON 07/MAR/2024.
     Route: 058
     Dates: start: 202103
  2. ACTEMRA [Suspect]
     Active Substance: TOCILIZUMAB
     Indication: Polymyalgia rheumatica
  3. ACTEMRA [Suspect]
     Active Substance: TOCILIZUMAB
     Indication: Osteoarthritis
  4. TRIAMCINOLONE [Concomitant]
     Active Substance: TRIAMCINOLONE
  5. PREDNISONE [Concomitant]
     Active Substance: PREDNISONE
  6. GABAPENTIN [Concomitant]
     Active Substance: GABAPENTIN
  7. PREDNISONE [Concomitant]
     Active Substance: PREDNISONE
  8. GABAPENTIN [Concomitant]
     Active Substance: GABAPENTIN
  9. FOLIC ACID [Concomitant]
     Active Substance: FOLIC ACID
  10. DUTASTERIDE [Concomitant]
     Active Substance: DUTASTERIDE
  11. DOXAZOSIN [Concomitant]
     Active Substance: DOXAZOSIN MESYLATE
  12. DULOXETINE [Concomitant]
     Active Substance: DULOXETINE

REACTIONS (22)
  - Diverticulitis [Unknown]
  - Colitis [Unknown]
  - COVID-19 [Recovered/Resolved]
  - Myalgia [Recovered/Resolved]
  - Gastrooesophageal reflux disease [Unknown]
  - Hypoaesthesia [Unknown]
  - Osteoarthritis [Unknown]
  - Type IIa hyperlipidaemia [Unknown]
  - Essential hypertension [Unknown]
  - Polymyalgia rheumatica [Unknown]
  - Back pain [Unknown]
  - Polyarthritis [Unknown]
  - Vitamin D deficiency [Unknown]
  - Blood creatinine increased [Unknown]
  - Transaminases increased [Unknown]
  - Steroid therapy [Unknown]
  - Diarrhoea [Unknown]
  - C-reactive protein increased [Unknown]
  - Alanine aminotransferase increased [Unknown]
  - Platelet count decreased [Unknown]
  - Blood creatine phosphokinase decreased [Unknown]
  - Paraesthesia [Unknown]

NARRATIVE: CASE EVENT DATE: 20211101
